FAERS Safety Report 10469232 (Version 1)
Quarter: 2014Q3

REPORT INFORMATION
  Report Type: Spontaneous
  Country: GB (occurrence: None)
  Receive Date: 20140919
  Receipt Date: 20140919
  Transmission Date: 20150326
  Serious: Yes (Hospitalization, Other)
  Sender: FDA-Public Use
  Company Number: GB-ZYDUS-005012

PATIENT
  Age: 62 Year
  Sex: Male

DRUGS (6)
  1. DICLOFENAC (DICLOFENAC) [Suspect]
     Active Substance: DICLOFENAC SODIUM
     Indication: ARTHRALGIA
  2. NITROFURANTOIN (NITROFURANTOIN) [Suspect]
     Active Substance: NITROFURANTOIN
     Indication: URINARY TRACT INFECTION
  3. CANDESARTAN CILEXETIL (CANDESARTAN CILEXETIL) [Suspect]
     Active Substance: CANDESARTAN CILEXETIL
  4. INSULIN (INSULIN) [Concomitant]
     Active Substance: INSULIN NOS
  5. CONTRAST MEDIA (CONTRAST MEDIA) [Concomitant]
  6. METFORMIN [Suspect]
     Active Substance: METFORMIN HYDROCHLORIDE
     Indication: URINARY TRACT INFECTION

REACTIONS (1)
  - Renal failure acute [None]
